FAERS Safety Report 7654981-3 (Version None)
Quarter: 2011Q3

REPORT INFORMATION
  Report Type: 
  Country: None (occurrence: None)
  Receive Date: 20110804
  Receipt Date: 20110727
  Transmission Date: 20111222
  Serious: Yes (Death, Disabling)
  Sender: FDA-Public Use
  Company Number: ES-ELI_LILLY_AND_COMPANY-ES201107007465

PATIENT
  Sex: Female

DRUGS (9)
  1. ACETAMINOPHEN [Concomitant]
     Indication: PAIN
     Dosage: UNK
     Route: 048
  2. ENALAPRIL MALEATE [Concomitant]
     Indication: HYPERTENSION
     Dosage: UNK
     Route: 048
  3. OMEPRAZOLE [Concomitant]
     Indication: PROPHYLAXIS
     Dosage: UNK
     Route: 048
  4. AMIODARONE HCL [Concomitant]
     Dosage: UNK
     Route: 048
  5. LEXATIN [Concomitant]
     Indication: SLEEP DISORDER
     Route: 048
  6. VERISCAL D [Concomitant]
     Dosage: UNK
     Route: 048
  7. ENANTYUM [Concomitant]
     Indication: PAIN
     Dosage: UNK
     Route: 048
  8. DEZACOR [Concomitant]
     Indication: ARTHRITIS
     Dosage: UNK
     Route: 048
  9. FORTEO [Suspect]
     Indication: OSTEOPOROSIS
     Dosage: 20 UG, QD
     Route: 058
     Dates: start: 20100501, end: 20110501

REACTIONS (2)
  - DEATH [None]
  - ARTHRITIS [None]
